FAERS Safety Report 4690638-9 (Version None)
Quarter: 2005Q2

REPORT INFORMATION
  Report Type: 
  Country: None (occurrence: None)
  Receive Date: 20050615
  Receipt Date: 20050609
  Transmission Date: 20051028
  Serious: Yes (Other)
  Sender: FDA-Public Use
  Company Number: US-GLAXOSMITHKLINE-A0562131A

PATIENT
  Age: 25 Year
  Sex: Male

DRUGS (4)
  1. WELLBUTRIN [Suspect]
     Dosage: 150MG PER DAY
     Route: 048
     Dates: start: 20050428
  2. DEPAKOTE [Concomitant]
  3. ADDERALL [Concomitant]
  4. XANAX [Concomitant]

REACTIONS (1)
  - LOSS OF CONSCIOUSNESS [None]
